FAERS Safety Report 6831057-6 (Version None)
Quarter: 2010Q3

REPORT INFORMATION
  Report Type: 
  Country: None (occurrence: None)
  Receive Date: 20100712
  Receipt Date: 20100630
  Transmission Date: 20110219
  Serious: Yes (Hospitalization)
  Sender: FDA-Public Use
  Company Number: TH-SANOFI-AVENTIS-2010SA038801

PATIENT
  Age: 79 Year
  Sex: Male
  Weight: 45 kg

DRUGS (2)
  1. PLAVIX [Suspect]
     Indication: PRODUCT USED FOR UNKNOWN INDICATION
     Route: 048
  2. INVESTIGATIONAL DRUG [Suspect]
     Indication: ACUTE CORONARY SYNDROME
     Dosage: 2.5 MG OR 5 MG
     Route: 048
     Dates: start: 20100507, end: 20100514

REACTIONS (2)
  - APLASTIC ANAEMIA [None]
  - RIGHT VENTRICULAR FAILURE [None]
